FAERS Safety Report 9543604 (Version 1)
Quarter: 2013Q3

REPORT INFORMATION
  Report Type: Spontaneous
  Country: US (occurrence: US)
  Receive Date: 20130923
  Receipt Date: 20130923
  Transmission Date: 20140515
  Serious: No
  Sender: FDA-Public Use
  Company Number: US-ROXANE LABORATORIES, INC.-2013-RO-01571RO

PATIENT
  Age: 62 Year
  Sex: Female
  Weight: 41 kg

DRUGS (3)
  1. PREDNISONE [Suspect]
     Indication: PULMONARY FIBROSIS
     Dosage: 40 MG
     Route: 048
     Dates: start: 20130831
  2. LEVOTHYROXINE [Concomitant]
     Indication: HYPOTHYROIDISM
     Dosage: 100 MCG
     Dates: start: 20060701
  3. LUBRICANT EYE DROPS [Concomitant]
     Indication: SJOGREN^S SYNDROME
     Dates: start: 20130415

REACTIONS (1)
  - Insomnia [Unknown]
